FAERS Safety Report 20032016 (Version 1)
Quarter: 2021Q4

REPORT INFORMATION
  Report Type: Spontaneous
  Country: US (occurrence: US)
  Receive Date: 20211103
  Receipt Date: 20211103
  Transmission Date: 20220303
  Serious: No
  Sender: FDA-Public Use
  Company Number: US-ALLERGAN-2108012US

PATIENT
  Sex: Male

DRUGS (2)
  1. VRAYLAR [Suspect]
     Active Substance: CARIPRAZINE
     Indication: Depression
     Dosage: 3 MG, QD
     Route: 048
  2. UNSPECIFIED INGREDIENT [Concomitant]
     Active Substance: UNSPECIFIED INGREDIENT

REACTIONS (1)
  - Drug ineffective [Unknown]
